FAERS Safety Report 7101317-2 (Version None)
Quarter: 2010Q4

REPORT INFORMATION
  Report Type: 
  Country: None (occurrence: None)
  Receive Date: 20101115
  Receipt Date: 20101108
  Transmission Date: 20110411
  Serious: Yes (Death, Hospitalization)
  Sender: FDA-Public Use
  Company Number: CA-CELGENEUS-028-21880-10100522

PATIENT
  Sex: Female

DRUGS (13)
  1. REVLIMID [Suspect]
     Route: 048
  2. REVLIMID [Suspect]
     Route: 048
  3. REVLIMID [Suspect]
     Route: 048
  4. REVLIMID [Suspect]
     Route: 048
     Dates: start: 20080501, end: 20100901
  5. SYNTHROID [Concomitant]
     Route: 065
  6. WHOLE BLOOD [Concomitant]
     Dosage: 7 UNITS
     Route: 051
  7. PANTOLOC [Concomitant]
     Route: 065
  8. FOLIC ACID [Concomitant]
     Route: 065
  9. PENTA 3B [Concomitant]
     Route: 065
  10. AVALIDE [Concomitant]
     Route: 065
  11. VALIUM [Concomitant]
     Route: 065
  12. TYLENOL [Concomitant]
     Route: 065
  13. IMODIUM [Concomitant]
     Route: 065

REACTIONS (5)
  - CHONDROCALCINOSIS PYROPHOSPHATE [None]
  - MYELODYSPLASTIC SYNDROME [None]
  - MYOPATHY [None]
  - NEUROPATHY PERIPHERAL [None]
  - SMALL INTESTINAL OBSTRUCTION [None]
